FAERS Safety Report 10405554 (Version 1)
Quarter: 2014Q3

REPORT INFORMATION
  Report Type: Other
  Country: US (occurrence: US)
  Receive Date: 20140825
  Receipt Date: 20140825
  Transmission Date: 20150326
  Serious: Yes (Other)
  Sender: FDA-Public Use
  Company Number: US-LUPIN PHARMACEUTICALS INC.-E2B_00002383

PATIENT
  Age: 15 Year
  Sex: Male
  Weight: 90.8 kg

DRUGS (1)
  1. LEVETIRACETAM EXTENDED-RELEASE TABLETS 500 MG [Suspect]
     Active Substance: LEVETIRACETAM
     Indication: EPILEPSY
     Dates: start: 20140722

REACTIONS (3)
  - Drug ineffective for unapproved indication [Unknown]
  - Convulsion [Unknown]
  - Off label use [Unknown]

NARRATIVE: CASE EVENT DATE: 20140722
